FAERS Safety Report 5134624-3 (Version None)
Quarter: 2006Q4

REPORT INFORMATION
  Report Type: 
  Country: None (occurrence: None)
  Receive Date: 20061025
  Receipt Date: 20061023
  Transmission Date: 20070319
  Serious: Yes (Hospitalization)
  Sender: FDA-Public Use
  Company Number: 2006SP002876

PATIENT
  Sex: Male

DRUGS (1)
  1. AZT [Suspect]
     Indication: DRUG USE FOR UNKNOWN INDICATION
     Route: 065

REACTIONS (4)
  - ABASIA [None]
  - ANAEMIA [None]
  - ASTHENIA [None]
  - FALL [None]
